FAERS Safety Report 25088103 (Version 1)
Quarter: 2025Q1

REPORT INFORMATION
  Report Type: Spontaneous
  Country: CN (occurrence: CN)
  Receive Date: 20250318
  Receipt Date: 20250318
  Transmission Date: 20250408
  Serious: Yes (Other)
  Sender: SANDOZ
  Company Number: CN-SANDOZ-SDZ2025CN015846

PATIENT
  Sex: Male
  Weight: 45 kg

DRUGS (1)
  1. VORICONAZOLE [Suspect]
     Active Substance: VORICONAZOLE
     Indication: Bronchopulmonary aspergillosis
     Dosage: 150 MG, BID
     Route: 048
     Dates: start: 20250221, end: 20250301

REACTIONS (2)
  - Condition aggravated [Unknown]
  - Keratitis [Recovering/Resolving]
